FAERS Safety Report 8814469 (Version 1)
Quarter: 2012Q4

REPORT INFORMATION
  Report Type: 
  Country: JP (occurrence: JP)
  Receive Date: 20120928
  Receipt Date: 20120928
  Transmission Date: 20130627
  Serious: Yes (Disabling)
  Sender: FDA-Public Use
  Company Number: JP-ASTELLAS-2012JP006706

PATIENT
  Sex: Female

DRUGS (2)
  1. VESICARE [Suspect]
     Dosage: UNK
     Route: 048
  2. ARGAMATE [Concomitant]
     Route: 048

REACTIONS (1)
  - Atrioventricular block complete [Recovered/Resolved]
